FAERS Safety Report 4532496-9 (Version None)
Quarter: 2004Q4

REPORT INFORMATION
  Report Type: 
  Country: None (occurrence: None)
  Receive Date: 20041220
  Receipt Date: 20041022
  Transmission Date: 20050328
  Serious: Yes (Other)
  Sender: FDA-Public Use
  Company Number: US-MERCK-0410USA03655

PATIENT
  Age: 48 Year
  Sex: Female
  Weight: 139 kg

DRUGS (5)
  1. VIOXX [Suspect]
     Route: 048
     Dates: start: 20030307, end: 20030307
  2. VIOXX [Suspect]
     Route: 048
     Dates: start: 20030730
  3. ACCUPRIL [Concomitant]
     Indication: HYPERTENSION
     Route: 048
     Dates: start: 20030528
  4. HYDROCHLOROTHIAZIDE [Concomitant]
     Indication: HYPERTENSION
     Route: 048
     Dates: start: 20020916
  5. NORVASC [Concomitant]
     Indication: HYPERTENSION
     Route: 065
     Dates: start: 20020916, end: 20030528

REACTIONS (8)
  - BACK PAIN [None]
  - DEAFNESS [None]
  - GASTRITIS [None]
  - HYPERTENSION [None]
  - MUSCULOSKELETAL STIFFNESS [None]
  - OEDEMA PERIPHERAL [None]
  - TINNITUS [None]
  - VISION BLURRED [None]
